FAERS Safety Report 4601098-8 (Version None)
Quarter: 2005Q1

REPORT INFORMATION
  Report Type: 
  Country: None (occurrence: None)
  Receive Date: 20050304
  Receipt Date: 20050304
  Transmission Date: 20050727
  Serious: Yes (Death)
  Sender: FDA-Public Use
  Company Number: None

PATIENT
  Sex: Female
  Weight: 77.1115 kg

DRUGS (12)
  1. PLETAL [Suspect]
     Indication: PERIPHERAL VASCULAR DISORDER
     Dosage: 50 MG 2X/DAY; 1/2HR BEFORE BRKFST/EVE. MEALS
     Dates: start: 20040901, end: 20040918
  2. TOPROL-XL [Concomitant]
  3. LOTREL [Concomitant]
  4. PREMARIN [Concomitant]
  5. ETODOLAC [Concomitant]
  6. TRAMADOL HCL [Concomitant]
  7. ALLEGRA [Concomitant]
  8. PROLEX [Concomitant]
  9. PHENYLEPHRINE/GAUIFENESIN [Concomitant]
  10. KETOCONAZOLE [Concomitant]
  11. ELOCON [Concomitant]
  12. PENTOXIFYLLINE [Concomitant]

REACTIONS (4)
  - CEREBROVASCULAR ACCIDENT [None]
  - CIRCULATORY COLLAPSE [None]
  - HYPERTENSION [None]
  - SUDDEN DEATH [None]
